FAERS Safety Report 12985640 (Version 2)
Quarter: 2017Q3

REPORT INFORMATION
  Report Type: Spontaneous
  Country: US (occurrence: US)
  Receive Date: 20161130
  Receipt Date: 20170818
  Transmission Date: 20171127
  Serious: No
  Sender: FDA-Public Use
  Company Number: US-ASTRAZENECA-2016SF07662

PATIENT
  Sex: Male
  Weight: 148.8 kg

DRUGS (2)
  1. BYDUREON [Suspect]
     Active Substance: EXENATIDE
     Indication: TYPE 2 DIABETES MELLITUS
     Route: 058
     Dates: start: 201606
  2. LEVEMIR [Concomitant]
     Active Substance: INSULIN DETEMIR

REACTIONS (6)
  - Injection site haemorrhage [Unknown]
  - Blood glucose increased [Unknown]
  - Product quality issue [Unknown]
  - Device issue [Unknown]
  - Underdose [Unknown]
  - Needle issue [Unknown]
